FAERS Safety Report 5424059-8 (Version None)
Quarter: 2007Q3

REPORT INFORMATION
  Report Type: 
  Country: None (occurrence: None)
  Receive Date: 20070727
  Receipt Date: 20061110
  Transmission Date: 20080115
  Serious: Yes (Other)
  Sender: FDA-Public Use
  Company Number: THYM-11127

PATIENT
  Age: 60 Year
  Sex: Male
  Weight: 69.4003 kg

DRUGS (3)
  1. THYMOGLOBULIN [Suspect]
     Indication: RENAL TRANSPLANT
     Dosage: 100 MG QD IV
     Route: 042
     Dates: start: 20060218, end: 20060220
  2. ATORVASTATIN [Concomitant]
  3. METOPROLOL SUCCINATE [Concomitant]

REACTIONS (3)
  - BLOOD GLUCOSE INCREASED [None]
  - BLOOD POTASSIUM INCREASED [None]
  - RENAL TUBULAR NECROSIS [None]
